FAERS Safety Report 7438091-6 (Version None)
Quarter: 2011Q2

REPORT INFORMATION
  Report Type: 
  Country: None (occurrence: None)
  Receive Date: 20110426
  Receipt Date: 20110419
  Transmission Date: 20111010
  Serious: Yes (Other)
  Sender: FDA-Public Use
  Company Number: US-MERCK-1104USA01012

PATIENT
  Age: 71 Year
  Sex: Female

DRUGS (4)
  1. SINEMET [Suspect]
     Route: 048
     Dates: start: 20010101, end: 20101001
  2. SINEMET [Suspect]
     Indication: PARKINSON'S DISEASE
     Dosage: 7 TIMES PER DAY
     Route: 048
     Dates: start: 20110405
  3. LORAZEPAM [Concomitant]
     Indication: SLEEP DISORDER
     Route: 065
  4. CARBIDOPA AND LEVODOPA [Suspect]
     Indication: PARKINSON'S DISEASE
     Route: 048
     Dates: start: 20101001, end: 20110401

REACTIONS (14)
  - ABDOMINAL PAIN UPPER [None]
  - DYSARTHRIA [None]
  - TOOTH EXTRACTION [None]
  - APHAGIA [None]
  - DYSPHAGIA [None]
  - RASH [None]
  - TONGUE DISORDER [None]
  - APHASIA [None]
  - MUSCLE SPASMS [None]
  - DRUG INEFFECTIVE [None]
  - PARKINSON'S DISEASE [None]
  - PRURITUS GENERALISED [None]
  - GINGIVAL PAIN [None]
  - FATIGUE [None]
